FAERS Safety Report 19472932 (Version 1)
Quarter: 2021Q2

REPORT INFORMATION
  Report Type: Spontaneous
  Country: RU (occurrence: RU)
  Receive Date: 20210629
  Receipt Date: 20210629
  Transmission Date: 20210717
  Serious: Yes (Death)
  Sender: FDA-Public Use
  Company Number: RU-HQ SPECIALTY-RU-2021INT000105

PATIENT

DRUGS (4)
  1. ETOPOSIDE. [Suspect]
     Active Substance: ETOPOSIDE
     Indication: OESOPHAGEAL CARCINOMA
     Dosage: 80 MG/M2, ON DAYS 1?3
     Route: 042
  2. 5 FLUOROURACIL                     /00098801/ [Suspect]
     Active Substance: FLUOROURACIL
     Indication: OESOPHAGEAL CARCINOMA
     Dosage: 425 MG/M2, ON DAYS 1?3
     Route: 042
  3. CISPLATIN. [Suspect]
     Active Substance: CISPLATIN
     Indication: OESOPHAGEAL CARCINOMA
     Dosage: 80 MG/M2, SINGLE, ON DAY 1 WITH ADEQUATE HYDRATION
     Route: 042
  4. LEUCOVORINE [Suspect]
     Active Substance: LEUCOVORIN
     Indication: OESOPHAGEAL CARCINOMA
     Dosage: 20 MG/M2, ON DAYS 1?3
     Route: 042

REACTIONS (3)
  - Arterial thrombosis [Fatal]
  - Cerebrovascular accident [Fatal]
  - Myocardial infarction [Fatal]
